FAERS Safety Report 6480212-6 (Version None)
Quarter: 2009Q4

REPORT INFORMATION
  Report Type: 
  Country: None (occurrence: None)
  Receive Date: 20091208
  Receipt Date: 20091130
  Transmission Date: 20100525
  Serious: Yes (Other)
  Sender: FDA-Public Use
  Company Number: GXKR2008GB08475

PATIENT
  Age: 37 Year
  Sex: Female

DRUGS (2)
  1. DOXYCYCLINE (NGX) [Suspect]
     Indication: ENDOMETRIOSIS
     Dosage: UNK
     Route: 065
  2. FLAGYL [Suspect]
     Indication: ENDOMETRIOSIS
     Dosage: 400 MG, TID
     Route: 048
     Dates: start: 20080717, end: 20080724

REACTIONS (2)
  - DRUG EXPOSURE DURING PREGNANCY [None]
  - ULTRASOUND ANTENATAL SCREEN ABNORMAL [None]
